FAERS Safety Report 17096994 (Version 1)
Quarter: 2019Q4

REPORT INFORMATION
  Report Type: Spontaneous
  Country: US (occurrence: US)
  Receive Date: 20191102
  Receipt Date: 20191102
  Transmission Date: 20200122
  Serious: Yes (Hospitalization)
  Sender: FDA-Public Use
  Company Number: None

PATIENT
  Age: 48 Year
  Sex: Male
  Weight: 150.5 kg

DRUGS (4)
  1. BEVACIZUMAB (RHUMAB VEGF) [Suspect]
     Active Substance: BEVACIZUMAB
     Dates: end: 20191002
  2. LEUCOVONIN CALCIUM [Suspect]
     Active Substance: LEUCOVORIN CALCIUM
     Dates: end: 20191002
  3. ELOXATIN [Suspect]
     Active Substance: OXALIPLATIN
     Dates: end: 20191002
  4. 5-FLUOROURACIL (5-FU) [Suspect]
     Active Substance: FLUOROURACIL
     Dates: end: 20191002

REACTIONS (7)
  - Nausea [None]
  - Diarrhoea haemorrhagic [None]
  - Abscess limb [None]
  - Vomiting [None]
  - Feeding disorder [None]
  - Abdominal pain [None]
  - Failure to thrive [None]

NARRATIVE: CASE EVENT DATE: 20191022
